FAERS Safety Report 9364786 (Version 2)
Quarter: 2013Q3

REPORT INFORMATION
  Report Type: Spontaneous
  Country: FR (occurrence: FR)
  Receive Date: 20130624
  Receipt Date: 20130705
  Transmission Date: 20140515
  Serious: Yes (Death, Other)
  Sender: FDA-Public Use
  Company Number: FR-UCBSA-089017

PATIENT
  Age: 29 Year
  Sex: Male

DRUGS (6)
  1. KEPPRA [Suspect]
     Dosage: STRENGTH: 100MG/ML
     Route: 042
     Dates: start: 20070731, end: 20070805
  2. DIPRIVAN [Suspect]
     Dosage: DOSE: FLOW BETWEEN 50 AND 200 MG/HOUR
     Route: 042
     Dates: start: 20070805, end: 20070805
  3. DIPRIVAN [Suspect]
     Dosage: DOSE: FLOW BETWEEN 50 AND 200 MG/HOUR
     Route: 042
     Dates: start: 20070802, end: 20070804
  4. ADRENALINE [Suspect]
     Dates: start: 20070805
  5. MORPHINE [Concomitant]
     Dates: start: 20070731, end: 20070805
  6. AZANTAC [Concomitant]
     Dates: start: 20070802, end: 20070809

REACTIONS (6)
  - Cardio-respiratory arrest [Fatal]
  - Bradycardia [Fatal]
  - Epilepsy [Unknown]
  - Hyponatraemia [Unknown]
  - Ventricular tachycardia [Unknown]
  - Coma [Unknown]
